FAERS Safety Report 5117480-9 (Version None)
Quarter: 2006Q3

REPORT INFORMATION
  Report Type: 
  Country: None (occurrence: None)
  Receive Date: 20060929
  Receipt Date: 20060922
  Transmission Date: 20061208
  Serious: Yes (Death)
  Sender: FDA-Public Use
  Company Number: ES-AVENTIS-200620030GDDC

PATIENT
  Age: 60 Year
  Sex: Male
  Weight: 58 kg

DRUGS (7)
  1. DOCETAXEL [Suspect]
     Indication: SQUAMOUS CELL CARCINOMA
     Route: 042
     Dates: start: 20060802, end: 20060802
  2. DOCETAXEL [Suspect]
     Route: 042
     Dates: start: 20060910, end: 20060910
  3. CISPLATIN [Suspect]
     Indication: SQUAMOUS CELL CARCINOMA
     Route: 042
     Dates: start: 20060802, end: 20060802
  4. CISPLATIN [Suspect]
     Route: 042
     Dates: start: 20060910, end: 20060910
  5. FLUOROURACIL [Suspect]
     Indication: SQUAMOUS CELL CARCINOMA
     Route: 041
     Dates: start: 20060802, end: 20060806
  6. FLUOROURACIL [Suspect]
     Route: 041
     Dates: start: 20060910
  7. ATROVENT [Concomitant]
     Indication: CHRONIC OBSTRUCTIVE PULMONARY DISEASE
     Route: 055

REACTIONS (2)
  - ACUTE MYOCARDIAL INFARCTION [None]
  - RENAL FAILURE [None]
